FAERS Safety Report 21143393 (Version 1)
Quarter: 2022Q3

REPORT INFORMATION
  Report Type: Spontaneous
  Country: CN (occurrence: CN)
  Receive Date: 20220728
  Receipt Date: 20220728
  Transmission Date: 20221027
  Serious: Yes (Death, Life-Threatening, Hospitalization)
  Sender: FDA-Public Use
  Company Number: CN-PFIZER INC-202201006610

PATIENT
  Age: 69 Year
  Sex: Male

DRUGS (5)
  1. IRINOTECAN HYDROCHLORIDE [Suspect]
     Active Substance: IRINOTECAN HYDROCHLORIDE
     Indication: Metastases to lung
     Dosage: 115 MG, CYCLIC (1ST DAY)
     Route: 042
     Dates: start: 20211116
  2. IRINOTECAN HYDROCHLORIDE [Suspect]
     Active Substance: IRINOTECAN HYDROCHLORIDE
     Dosage: 115 MG, CYCLIC (8TH DAY))
     Route: 042
     Dates: start: 20211123
  3. DURVALUMAB [Suspect]
     Active Substance: DURVALUMAB
     Indication: Metastases to lung
     Dosage: 1500 MG, CYCLIC (1ST DAY)
     Route: 042
     Dates: start: 20211116
  4. CISPLATIN [Suspect]
     Active Substance: CISPLATIN
     Indication: Metastases to lung
     Dosage: 50 MG, CYCLIC (1ST DAY)
     Route: 042
     Dates: start: 20211116
  5. CISPLATIN [Suspect]
     Active Substance: CISPLATIN
     Dosage: 50 MG, CYCLIC (8TH DAY)
     Route: 042
     Dates: start: 20211123

REACTIONS (1)
  - Colitis [Fatal]
